FAERS Safety Report 8308884-1 (Version None)
Quarter: 2012Q2

REPORT INFORMATION
  Report Type: 
  Country: None (occurrence: None)
  Receive Date: 20120421
  Receipt Date: 20120421
  Transmission Date: 20120825
  Serious: Yes (Hospitalization)
  Sender: FDA-Public Use
  Company Number: None

PATIENT
  Sex: Female
  Weight: 80.5 kg

DRUGS (5)
  1. VINCRISTINE SULFATE [Suspect]
     Dosage: 4 MG
  2. PEG-L ASPARAGINASE (K-H) [Suspect]
     Dosage: 5100 MG
  3. CYCLOPHOSPHAMIDE [Suspect]
     Dosage: 3980 MG
  4. CYTARABINE [Suspect]
     Dosage: 1800 MG
  5. METHOTREXATE [Suspect]
     Dosage: 60 MG

REACTIONS (4)
  - GALLBLADDER DISORDER [None]
  - HEPATITIS ACUTE [None]
  - CHOLELITHIASIS [None]
  - HEPATIC STEATOSIS [None]
